FAERS Safety Report 7569470-4 (Version None)
Quarter: 2011Q2

REPORT INFORMATION
  Report Type: 
  Country: None (occurrence: None)
  Receive Date: 20110624
  Receipt Date: 20110614
  Transmission Date: 20111010
  Serious: Yes (Hospitalization)
  Sender: FDA-Public Use
  Company Number: US-BIOGENIDEC-2010BI021499

PATIENT
  Age: 65 Year
  Sex: Female

DRUGS (5)
  1. AVONEX [Suspect]
     Route: 030
     Dates: start: 20080101, end: 20090101
  2. AVONEX [Suspect]
     Route: 030
     Dates: start: 20100525
  3. UNKNOWN CHOLESTEROL-LOWERING AGENTS [Concomitant]
     Indication: PROPHYLAXIS
  4. BETA BLOCKERS [Concomitant]
  5. AVONEX [Suspect]
     Indication: MULTIPLE SCLEROSIS
     Route: 030
     Dates: start: 19991011, end: 20070501

REACTIONS (5)
  - CATHETERISATION CARDIAC [None]
  - DRUG INTOLERANCE [None]
  - CORONARY ARTERY DISSECTION [None]
  - MYOCARDIAL INFARCTION [None]
  - MYOCARDIAL ISCHAEMIA [None]
